FAERS Safety Report 4897559-7 (Version None)
Quarter: 2006Q1

REPORT INFORMATION
  Report Type: 
  Country: None (occurrence: None)
  Receive Date: 20060130
  Receipt Date: 20060130
  Transmission Date: 20060701
  Serious: Yes (Life-Threatening, Hospitalization, Other)
  Sender: FDA-Public Use
  Company Number: None

PATIENT
  Age: 56 Year
  Sex: Male
  Weight: 95 kg

DRUGS (2)
  1. (HURICANE BENZOCAINE TOP 20 % SPRAY [Suspect]
     Indication: BIOPSY
     Dosage: 6 SPRAYS
     Dates: start: 20051017
  2. (HURICANE BENZOCAINE TOP 20 % SPRAY [Suspect]
     Indication: BRONCHOSCOPY
     Dosage: 6 SPRAYS
     Dates: start: 20051017

REACTIONS (1)
  - METHAEMOGLOBINAEMIA [None]
